FAERS Safety Report 19043234 (Version 6)
Quarter: 2021Q2

REPORT INFORMATION
  Report Type: Report from Study
  Country: ES (occurrence: ES)
  Receive Date: 20210322
  Receipt Date: 20210625
  Transmission Date: 20210717
  Serious: Yes (Death, Life-Threatening, Hospitalization)
  Sender: FDA-Public Use
  Company Number: ES-EISAI MEDICAL RESEARCH-EC-2021-089921

PATIENT
  Age: 54 Year
  Sex: Male
  Weight: 65.3 kg

DRUGS (9)
  1. METASEDIN [Concomitant]
     Dates: start: 20210111
  2. PEMBROLIZUMAB. [Suspect]
     Active Substance: PEMBROLIZUMAB
     Route: 041
     Dates: start: 20210202, end: 20210202
  3. LENVATINIB [Suspect]
     Active Substance: LENVATINIB
     Indication: NON-SMALL CELL LUNG CANCER METASTATIC
     Dosage: STARTING DOSE AT 20 MILLIGRAM, FLUCTUATED DOSAGE
     Route: 048
     Dates: start: 20200727, end: 20210113
  4. PEMBROLIZUMAB. [Suspect]
     Active Substance: PEMBROLIZUMAB
     Indication: NON-SMALL CELL LUNG CANCER METASTATIC
     Route: 041
     Dates: start: 20200727, end: 20210112
  5. MOTILIUM [Concomitant]
     Active Substance: DOMPERIDONE
     Dates: start: 20200623
  6. FENTANYL. [Concomitant]
     Active Substance: FENTANYL
     Dates: start: 20200722
  7. LENVATINIB [Suspect]
     Active Substance: LENVATINIB
     Route: 048
     Dates: start: 20210114, end: 20210114
  8. YANIMO [Concomitant]
     Dates: start: 20200626
  9. MOVENTIG [Concomitant]
     Active Substance: NALOXEGOL OXALATE
     Dates: start: 20200603

REACTIONS (1)
  - Haemoptysis [Recovered/Resolved]

NARRATIVE: CASE EVENT DATE: 20210315
